FAERS Safety Report 10067132 (Version 1)
Quarter: 2014Q2

REPORT INFORMATION
  Report Type: Spontaneous
  Country: US (occurrence: US)
  Receive Date: 20140409
  Receipt Date: 20140409
  Transmission Date: 20141212
  Serious: No
  Sender: FDA-Public Use
  Company Number: US-SHIRE-US201401191

PATIENT
  Sex: 0

DRUGS (2)
  1. VYVANSE [Suspect]
     Indication: ATTENTION DEFICIT/HYPERACTIVITY DISORDER
     Dosage: 50 MG, 1X/DAY:QD
     Route: 048
     Dates: start: 2013
  2. VYVANSE [Suspect]
     Dosage: UNK UNK, UNKNOWN (OPENS 50 MG CAPSULE AND TAKES HALF OF CONTENTS DAILY ON OCCASION)
     Route: 048
     Dates: start: 2013

REACTIONS (4)
  - Emotional distress [Not Recovered/Not Resolved]
  - Disturbance in attention [Not Recovered/Not Resolved]
  - Incorrect dose administered [Not Recovered/Not Resolved]
  - Product quality issue [Unknown]
